FAERS Safety Report 5356960-8 (Version None)
Quarter: 2007Q2

REPORT INFORMATION
  Report Type: 
  Country: None (occurrence: None)
  Receive Date: 20070614
  Receipt Date: 20070611
  Transmission Date: 20071010
  Serious: Yes (Hospitalization)
  Sender: FDA-Public Use
  Company Number: FR-BRISTOL-MYERS SQUIBB COMPANY-13812409

PATIENT
  Age: 32 Year
  Sex: Female

DRUGS (6)
  1. REYATAZ [Suspect]
     Indication: HIV INFECTION
     Route: 048
     Dates: start: 20070212, end: 20070219
  2. RITONAVIR [Suspect]
     Indication: HIV INFECTION
     Dates: start: 20070212, end: 20070219
  3. TRUVADA [Concomitant]
     Indication: HIV INFECTION
     Dates: start: 20070212, end: 20070219
  4. BACTRIM DS [Concomitant]
     Indication: CEREBRAL TOXOPLASMOSIS
     Dates: start: 20070111
  5. SPORANOX [Concomitant]
     Indication: HISTOPLASMOSIS
     Dates: start: 20061128
  6. DEPAKENE [Concomitant]
     Dates: start: 20070207

REACTIONS (4)
  - ABNORMAL BEHAVIOUR [None]
  - HALLUCINATION, VISUAL [None]
  - INSOMNIA [None]
  - PERSECUTORY DELUSION [None]
